FAERS Safety Report 9471203 (Version 2)
Quarter: 2014Q3

REPORT INFORMATION
  Report Type: Spontaneous
  Country: US (occurrence: None)
  Receive Date: 20130816
  Receipt Date: 20140917
  Transmission Date: 20150326
  Serious: Yes (Other)
  Sender: FDA-Public Use
  Company Number: 2013-000224

PATIENT
  Age: 62 Year
  Sex: Female
  Weight: 80.7 kg

DRUGS (28)
  1. ALENDRONATE (ALENDRONATE SODIUM) [Suspect]
     Active Substance: ALENDRONATE SODIUM
     Indication: OSTEOPOROSIS PROPHYLAXIS
     Route: 048
     Dates: start: 200810, end: 200912
  2. ZOLOFT [Concomitant]
     Active Substance: SERTRALINE HYDROCHLORIDE
  3. HYDROCODONE/GUAIFENESIN (GUAIFENESIN, HYDROCODONE BITARTRATE) [Concomitant]
  4. FOSAMAX [Suspect]
     Active Substance: ALENDRONATE SODIUM
     Indication: OSTEOPOROSIS PROPHYLAXIS
     Dates: start: 200810, end: 201109
  5. ALENDRONATE (ALENDRONATE SODIUM) [Suspect]
     Active Substance: ALENDRONATE SODIUM
     Indication: OSTEOPOROSIS
     Route: 048
     Dates: start: 200810, end: 200912
  6. PREVACID [Concomitant]
     Active Substance: LANSOPRAZOLE
  7. ZOCOR [Concomitant]
     Active Substance: SIMVASTATIN
  8. DICYCLOMINE HYDROCHLORIDE (DICYCLOVERINE HYDROCHLORIDE) [Concomitant]
  9. HISTINEX HC (CHLORPHENAMINE MALEATE, HYDROCODONE BITARTRATE, PHENYLEPHRINE HYDROCHLORIDE) [Concomitant]
  10. EVISTA [Concomitant]
     Active Substance: RALOXIFENE HYDROCHLORIDE
  11. AVALIDE (HYDROCHLOROTHIAZIDE, IRBESARTAN) [Concomitant]
  12. FOSAMAX PLUS D [Suspect]
     Active Substance: ALENDRONATE SODIUM\CHOLECALCIFEROL
     Indication: OSTEOPOROSIS
     Route: 048
     Dates: start: 201003, end: 201109
  13. FOSAMAX PLUS D [Suspect]
     Active Substance: ALENDRONATE SODIUM\CHOLECALCIFEROL
     Indication: OSTEOPOROSIS PROPHYLAXIS
     Route: 048
     Dates: start: 201003, end: 201109
  14. SULINDAC. [Concomitant]
     Active Substance: SULINDAC
  15. HYDROCHLOROTHIAZIDE. [Concomitant]
     Active Substance: HYDROCHLOROTHIAZIDE
  16. LISINOPRIL AND HYDROCHLOROTHIAZIDE [Concomitant]
     Active Substance: HYDROCHLOROTHIAZIDE\LISINOPRIL
  17. AMOXICILLIN. [Concomitant]
     Active Substance: AMOXICILLIN
  18. AMOXICILLIN TRIHYDRATE W/CLAVULANTE POTASSIUM (AMOXICILLIN TRIHYDRATE, CLAVULANATE POTASSIUM) [Concomitant]
  19. ACTONEL [Suspect]
     Active Substance: RISEDRONATE SODIUM
     Route: 048
     Dates: start: 200509, end: 200810
  20. FOSAMAX PLUS D [Suspect]
     Active Substance: ALENDRONATE SODIUM\CHOLECALCIFEROL
     Indication: OSTEOPENIA
     Route: 048
     Dates: start: 201003, end: 201109
  21. ANTIPYRINE/BENZOCAINE (BENZOCAINE, PHENAZONE) [Concomitant]
  22. FOSAMAX [Suspect]
     Active Substance: ALENDRONATE SODIUM
     Indication: OSTEOPENIA
     Dates: start: 200810, end: 201109
  23. NEXIUM I.V. [Concomitant]
     Active Substance: ESOMEPRAZOLE SODIUM
  24. ADVAIR DISKUS [Concomitant]
     Active Substance: FLUTICASONE PROPIONATE\SALMETEROL XINAFOATE
  25. ACETAMINOPHEN W/CODEINE (CODEINE, PARACETAMOL) [Concomitant]
  26. ALENDRONATE (ALENDRONATE SODIUM) [Suspect]
     Active Substance: ALENDRONATE SODIUM
     Indication: OSTEOPENIA
     Route: 048
     Dates: start: 200810, end: 200912
  27. UNIRETIC (HYDROCHLOROTHIAZIDE, MOEXIPRIL HYDROCHLORIDE) [Concomitant]
  28. CICLOPIROX. [Concomitant]
     Active Substance: CICLOPIROX

REACTIONS (10)
  - Pathological fracture [None]
  - Avulsion fracture [None]
  - Arthralgia [None]
  - Fracture displacement [None]
  - Fracture delayed union [None]
  - Stress fracture [None]
  - Femur fracture [None]
  - Fall [None]
  - Bone disorder [None]
  - Low turnover osteopathy [None]

NARRATIVE: CASE EVENT DATE: 20110903
